FAERS Safety Report 22118098 (Version 1)
Quarter: 2023Q1

REPORT INFORMATION
  Report Type: Spontaneous
  Country: CN (occurrence: CN)
  Receive Date: 20230321
  Receipt Date: 20230321
  Transmission Date: 20230418
  Serious: Yes (Other)
  Sender: FDA-Public Use
  Company Number: None

PATIENT
  Age: 52 Year
  Sex: Female
  Weight: 58 kg

DRUGS (13)
  1. CYCLOPHOSPHAMIDE [Suspect]
     Active Substance: CYCLOPHOSPHAMIDE
     Indication: Chemotherapy
     Dosage: 850 MG, DILUTED WITH 100 ML OF 0.9 % SODIUM CHLORIDE QD, AS PART OF SECOND CHEMOTHERAPY OF ECT REGIM
     Route: 041
     Dates: start: 20230304, end: 20230304
  2. CYCLOPHOSPHAMIDE [Suspect]
     Active Substance: CYCLOPHOSPHAMIDE
     Indication: Breast cancer female
  3. EPIRUBICIN [Suspect]
     Active Substance: EPIRUBICIN
     Indication: Chemotherapy
     Dosage: 140 MG, DILUTED WITH 100 ML OF 0.9 % SODIUM CHLORIDE QD, AS PART OF SECOND CHEMOTHERAPY OF ECT REGIM
     Route: 041
     Dates: start: 20230304, end: 20230304
  4. EPIRUBICIN [Suspect]
     Active Substance: EPIRUBICIN
     Indication: Breast cancer female
  5. SODIUM CHLORIDE [Suspect]
     Active Substance: SODIUM CHLORIDE
     Indication: Chemotherapy
     Dosage: 100 ML, USED TO DILUTE 850 MG CYCLOPHOSPHAMIDE QD, AT 08:51
     Route: 041
     Dates: start: 20230304, end: 20230304
  6. SODIUM CHLORIDE [Suspect]
     Active Substance: SODIUM CHLORIDE
     Indication: Breast cancer female
     Dosage: 100 ML, USED TO DILUTE 140 MG EPIRUBICIN HYDROCHLORIDE QD, AT 08:51
     Route: 041
     Dates: start: 20230304, end: 20230304
  7. OMEPRAZOLE SODIUM [Concomitant]
     Active Substance: OMEPRAZOLE SODIUM
     Indication: Prophylaxis
     Dosage: 40 MG, DILUTED WITH 100 ML OF 0.9% SODIUM CHLORIDE, AT 08:15
     Route: 065
     Dates: start: 20230304
  8. TROPISETRON [Concomitant]
     Active Substance: TROPISETRON
     Indication: Prophylaxis of nausea and vomiting
     Dosage: 5 MG, DILUTED WITH 5 ML OF 0.9% SODIUM CHLORIDE, AT 08:15
     Route: 065
     Dates: start: 20230304
  9. TROPISETRON [Concomitant]
     Active Substance: TROPISETRON
     Dosage: 5 MG, DILUTED WITH 5 ML OF 0.9% SODIUM CHLORIDE, AT 08:51
     Route: 065
     Dates: start: 20230304
  10. DEXAMETHASONE [Concomitant]
     Active Substance: DEXAMETHASONE
     Indication: Prophylaxis of nausea and vomiting
     Dosage: 5 MG, AT 08:15
     Route: 042
     Dates: start: 20230304
  11. SODIUM CHLORIDE [Concomitant]
     Active Substance: SODIUM CHLORIDE
     Indication: Medication dilution
     Dosage: 100 ML, USED TO DILUTE 40 MG OF OMEPRAZOLE SODIUM, AT 08:15
     Route: 065
     Dates: start: 20230304
  12. SODIUM CHLORIDE [Concomitant]
     Active Substance: SODIUM CHLORIDE
     Dosage: 5 ML, USED TO DILUTE 5 MG OF TROPISETRON, AT 08:15
     Route: 065
     Dates: start: 20230304
  13. SODIUM CHLORIDE [Concomitant]
     Active Substance: SODIUM CHLORIDE
     Dosage: 5 ML, USED TO DILUTE 5 MG OF TROPISETRON, AT 08:51
     Route: 065
     Dates: start: 20230304

REACTIONS (4)
  - Initial insomnia [Recovering/Resolving]
  - Nausea [Recovering/Resolving]
  - Vomiting [Recovering/Resolving]
  - Abdominal discomfort [Unknown]

NARRATIVE: CASE EVENT DATE: 20230304
